FAERS Safety Report 6771824-0 (Version None)
Quarter: 2010Q2

REPORT INFORMATION
  Report Type: 
  Country: None (occurrence: None)
  Receive Date: 20100616
  Receipt Date: 20100325
  Transmission Date: 20101027
  Serious: Yes (Other)
  Sender: FDA-Public Use
  Company Number: US-BAYER-201013553NA

PATIENT
  Age: 30 Year
  Sex: Female
  Weight: 102 kg

DRUGS (3)
  1. YAZ [Suspect]
     Indication: CONTRACEPTION
     Route: 048
     Dates: start: 20070401, end: 20090501
  2. YASMIN [Suspect]
     Indication: DRUG USE FOR UNKNOWN INDICATION
     Route: 048
     Dates: start: 20070401, end: 20090501
  3. OCELLA [Suspect]
     Indication: DRUG USE FOR UNKNOWN INDICATION
     Route: 048
     Dates: start: 20070401, end: 20090501

REACTIONS (6)
  - ABDOMINAL PAIN UPPER [None]
  - BILIARY COLIC [None]
  - CHOLELITHIASIS [None]
  - GASTROOESOPHAGEAL REFLUX DISEASE [None]
  - NAUSEA [None]
  - VOMITING [None]
